FAERS Safety Report 7703194-5 (Version None)
Quarter: 2011Q3

REPORT INFORMATION
  Report Type: 
  Country: None (occurrence: None)
  Receive Date: 20110823
  Receipt Date: 20110817
  Transmission Date: 20111222
  Serious: Yes (Other)
  Sender: FDA-Public Use
  Company Number: US-PFIZER INC-2011189792

PATIENT
  Sex: Female

DRUGS (3)
  1. LYRICA [Suspect]
     Indication: PAIN
     Dosage: 150 MG, 4X/DAY
     Route: 048
     Dates: start: 20110501, end: 20110808
  2. WELLBUTRIN [Concomitant]
     Dosage: UNK
  3. OXYCODONE HCL [Suspect]
     Indication: PAIN
     Dosage: 30 MG

REACTIONS (9)
  - DYSPNOEA [None]
  - RED BLOOD CELLS URINE POSITIVE [None]
  - APHAGIA [None]
  - SWELLING FACE [None]
  - WEIGHT INCREASED [None]
  - WITHDRAWAL SYNDROME [None]
  - CHEST PAIN [None]
  - OEDEMA PERIPHERAL [None]
  - ABDOMINAL DISTENSION [None]
